FAERS Safety Report 4350997-3 (Version None)
Quarter: 2004Q2

REPORT INFORMATION
  Report Type: 
  Country: None (occurrence: None)
  Receive Date: 20040428
  Receipt Date: 20030403
  Transmission Date: 20050107
  Serious: Yes (Other)
  Sender: FDA-Public Use
  Company Number: 335470

PATIENT
  Age: 48 Year
  Sex: Female

DRUGS (1)
  1. NAPROXEN [Suspect]
     Dosage: ORAL
     Route: 048
     Dates: start: 20030311

REACTIONS (4)
  - ANAPHYLACTIC REACTION [None]
  - CHEST PAIN [None]
  - GENERALISED ERYTHEMA [None]
  - SWELLING FACE [None]
